FAERS Safety Report 5402409-6 (Version None)
Quarter: 2007Q3

REPORT INFORMATION
  Report Type: 
  Country: None (occurrence: None)
  Receive Date: 20070730
  Receipt Date: 20070730
  Transmission Date: 20080115
  Serious: Yes (Life-Threatening, Hospitalization)
  Sender: FDA-Public Use
  Company Number: None

PATIENT
  Age: 3 Year
  Sex: Male
  Weight: 14.5151 kg

DRUGS (4)
  1. SINGULAIR [Suspect]
     Indication: ASTHMA
     Dosage: 1 PILL DAILY
     Dates: start: 20050101, end: 20061201
  2. SINGULAIR [Suspect]
     Indication: HYPERSENSITIVITY
     Dosage: 1 PILL DAILY
     Dates: start: 20050101, end: 20061201
  3. SINGULAIR [Suspect]
     Indication: ASTHMA
     Dosage: 1 PILL DAILY
     Dates: start: 20070220, end: 20070301
  4. SINGULAIR [Suspect]
     Indication: HYPERSENSITIVITY
     Dosage: 1 PILL DAILY
     Dates: start: 20070220, end: 20070301

REACTIONS (4)
  - BLINDNESS UNILATERAL [None]
  - BURNS SECOND DEGREE [None]
  - ONYCHOMADESIS [None]
  - TOXIC EPIDERMAL NECROLYSIS [None]
